FAERS Safety Report 8295093-8 (Version None)
Quarter: 2012Q2

REPORT INFORMATION
  Report Type: 
  Country: None (occurrence: None)
  Receive Date: 20120413
  Receipt Date: 20120330
  Transmission Date: 20120825
  Serious: Yes (Death)
  Sender: FDA-Public Use
  Company Number: 2012MA004449

PATIENT
  Age: 71 Year
  Sex: Female

DRUGS (1)
  1. DIAZEPAM [Suspect]
     Indication: SEDATIVE THERAPY
     Dosage: 2 MG;1X;IVBOL
     Route: 040
     Dates: start: 20111223, end: 20111223

REACTIONS (3)
  - RESTLESSNESS [None]
  - CARDIAC ARREST [None]
  - RESPIRATORY FAILURE [None]
